FAERS Safety Report 18198720 (Version 2)
Quarter: 2020Q3

REPORT INFORMATION
  Report Type: Spontaneous
  Country: US (occurrence: US)
  Receive Date: 20200826
  Receipt Date: 20200910
  Transmission Date: 20201103
  Serious: Yes (Hospitalization)
  Sender: FDA-Public Use
  Company Number: US-ELI_LILLY_AND_COMPANY-US202008006687

PATIENT
  Sex: Female

DRUGS (4)
  1. HUMALOG [Suspect]
     Active Substance: INSULIN LISPRO
     Dosage: 8 U, TID
     Route: 058
     Dates: start: 2019, end: 202004
  2. HUMALOG [Suspect]
     Active Substance: INSULIN LISPRO
     Indication: TYPE 2 DIABETES MELLITUS
     Dosage: 8 U, TID
     Route: 058
     Dates: start: 2005, end: 2007
  3. METFORMIN [Concomitant]
     Active Substance: METFORMIN HYDROCHLORIDE
     Indication: PRODUCT USED FOR UNKNOWN INDICATION
  4. LANTUS [Concomitant]
     Active Substance: INSULIN GLARGINE
     Indication: TYPE 2 DIABETES MELLITUS
     Dosage: 10 U, EACH EVENING (NIGHT)

REACTIONS (12)
  - Insomnia [Recovering/Resolving]
  - Urge incontinence [Recovering/Resolving]
  - Balance disorder [Recovered/Resolved]
  - Mobility decreased [Unknown]
  - Gait disturbance [Recovering/Resolving]
  - Pollakiuria [Recovering/Resolving]
  - Blood glucose increased [Not Recovered/Not Resolved]
  - Visual impairment [Recovering/Resolving]
  - Skin wrinkling [Recovering/Resolving]
  - Coordination abnormal [Recovered/Resolved]
  - Dehydration [Recovering/Resolving]
  - Fatigue [Recovering/Resolving]
